FAERS Safety Report 25809235 (Version 1)
Quarter: 2025Q3

REPORT INFORMATION
  Report Type: Spontaneous
  Country: GB (occurrence: GB)
  Receive Date: 20250916
  Receipt Date: 20250916
  Transmission Date: 20251021
  Serious: Yes (Other)
  Sender: IDORSIA PHARMACEUTICALS
  Company Number: None

PATIENT
  Age: 55 Year
  Sex: Male
  Weight: 112 kg

DRUGS (1)
  1. QUVIVIQ [Suspect]
     Active Substance: DARIDOREXANT
     Indication: Insomnia
     Route: 065
     Dates: start: 20250829

REACTIONS (3)
  - Suicidal ideation [Recovered/Resolved with Sequelae]
  - Feeling abnormal [Recovered/Resolved with Sequelae]
  - Emotional distress [Recovered/Resolved with Sequelae]

NARRATIVE: CASE EVENT DATE: 20250830
